FAERS Safety Report 5426683-5 (Version None)
Quarter: 2007Q3

REPORT INFORMATION
  Report Type: 
  Country: None (occurrence: None)
  Receive Date: 20070731
  Receipt Date: 20070426
  Transmission Date: 20080115
  Serious: No
  Sender: FDA-Public Use
  Company Number: 2006PV009376

PATIENT
  Age: 65 Year
  Sex: Female
  Weight: 77.1 kg

DRUGS (7)
  1. EXENATIDE(EXENATIDE) PEN, DISPOSABLE [Suspect]
     Indication: TYPE 2 DIABETES MELLITUS
     Dosage: 10 UG, 2/D, SUBCUTANEOUS
     Route: 058
     Dates: start: 20051201, end: 20060101
  2. EXENATIDE(EXENATIDE) PEN, DISPOSABLE [Suspect]
  3. EXENATIDE (EXENATIDE) [Concomitant]
  4. GLUCOPHAGE [Concomitant]
  5. GLIPIZIDE [Concomitant]
  6. LISINOPRIL [Concomitant]
  7. ACTOS [Concomitant]

REACTIONS (4)
  - NAUSEA [None]
  - NEPHROLITHIASIS [None]
  - VOMITING [None]
  - WEIGHT DECREASED [None]
